FAERS Safety Report 13416826 (Version 1)
Quarter: 2017Q2

REPORT INFORMATION
  Report Type: Report from Study
  Country: CA (occurrence: CA)
  Receive Date: 20170407
  Receipt Date: 20170407
  Transmission Date: 20170830
  Serious: Yes (Hospitalization)
  Sender: FDA-Public Use
  Company Number: CA-JNJFOC-20170123658

PATIENT
  Age: 34 Year
  Sex: Male
  Weight: 54 kg

DRUGS (1)
  1. STELARA [Suspect]
     Active Substance: USTEKINUMAB
     Indication: CROHN^S DISEASE
     Dosage: 270 MG AT WEEK 0, 180 MG AT WEEKS 1 AND 2
     Route: 058
     Dates: start: 20161004

REACTIONS (3)
  - Colostomy closure [Recovering/Resolving]
  - Wound infection [Recovering/Resolving]
  - Hospitalisation [Unknown]

NARRATIVE: CASE EVENT DATE: 20170316
